FAERS Safety Report 9098479 (Version 1)
Quarter: 2013Q1

REPORT INFORMATION
  Report Type: Spontaneous
  Country: US (occurrence: US)
  Receive Date: 20130213
  Receipt Date: 20130213
  Transmission Date: 20140127
  Serious: Yes (Other)
  Sender: FDA-Public Use
  Company Number: PHEH2013US003272

PATIENT
  Sex: Female

DRUGS (8)
  1. DIOVAN [Suspect]
     Indication: BLOOD PRESSURE ABNORMAL
     Dosage: 1 DF (VALSA 320 MG) QD
     Route: 048
  2. METFORMIN [Suspect]
     Dosage: UNK UKN, UNK
  3. CLOPIDOGREL [Concomitant]
     Dosage: 1 DF, UNK
     Route: 048
  4. TRAZODONE [Concomitant]
     Dosage: UNK UKN, UNK
  5. METOPROLOL [Concomitant]
     Dosage: UNK UKN, UNK
  6. TRAMADOL [Concomitant]
     Dosage: UNK UKN, UNK
  7. FEXOFENADINE HCL [Concomitant]
     Dosage: UNK UKN, UNK
  8. NEXIUM 1-2-3 [Concomitant]
     Dosage: UNK UKN, UNK

REACTIONS (3)
  - Diabetes mellitus [Unknown]
  - Fluid retention [Unknown]
  - Headache [Unknown]
